FAERS Safety Report 25003428 (Version 1)
Quarter: 2025Q1

REPORT INFORMATION
  Report Type: Other
  Country: GB (occurrence: GB)
  Receive Date: 20250224
  Receipt Date: 20250224
  Transmission Date: 20250408
  Serious: Yes (Death)
  Sender: ANI
  Company Number: GB-ANIPHARMA-015724

PATIENT
  Age: 53 Year
  Sex: Female

DRUGS (4)
  1. CYCLOPHOSPHAMIDE [Suspect]
     Active Substance: CYCLOPHOSPHAMIDE
     Indication: Breast angiosarcoma
  2. CAPECITABINE [Concomitant]
     Active Substance: CAPECITABINE
     Indication: Breast angiosarcoma
  3. METFORMIN [Concomitant]
     Active Substance: METFORMIN HYDROCHLORIDE
     Indication: Breast angiosarcoma
  4. CELECOXIB [Concomitant]
     Active Substance: CELECOXIB
     Indication: Breast angiosarcoma

REACTIONS (1)
  - Drug ineffective [Fatal]
